FAERS Safety Report 20533440 (Version 1)
Quarter: 2022Q1

REPORT INFORMATION
  Report Type: Spontaneous
  Country: US (occurrence: US)
  Receive Date: 20220301
  Receipt Date: 20220301
  Transmission Date: 20220423
  Serious: No
  Sender: FDA-Public Use
  Company Number: US-BAYER-2022A028207

PATIENT
  Age: 66 Year
  Sex: Female
  Weight: 55.79 kg

DRUGS (2)
  1. CIPRO [Suspect]
     Active Substance: CIPROFLOXACIN HYDROCHLORIDE
  2. VORICONAZOLE [Suspect]
     Active Substance: VORICONAZOLE
     Dosage: 5.0 ML TWICE A DAY
     Route: 048
     Dates: start: 202111

REACTIONS (7)
  - Alopecia [None]
  - Insomnia [None]
  - Nystagmus [None]
  - Feeling abnormal [None]
  - Memory impairment [None]
  - Madarosis [None]
  - Frustration tolerance decreased [None]
